FAERS Safety Report 8475180-1 (Version None)
Quarter: 2012Q2

REPORT INFORMATION
  Report Type: 
  Country: None (occurrence: None)
  Receive Date: 20120628
  Receipt Date: 20120622
  Transmission Date: 20120825
  Serious: Yes (Life-Threatening, Congenital Anomaly, Other)
  Sender: FDA-Public Use
  Company Number: US-PFIZER INC-2012152244

PATIENT
  Sex: Male

DRUGS (6)
  1. ZOLOFT [Suspect]
     Dosage: 25 MG, TWO TABLETS DAILY
     Route: 064
     Dates: start: 20051019
  2. CITALOPRAM [Concomitant]
     Dosage: 20 MG, UNK
     Route: 064
     Dates: start: 20051114
  3. PAXIL [Concomitant]
     Indication: ANXIETY
     Dosage: 25 MG, UNK
     Route: 064
     Dates: start: 20041220, end: 20050928
  4. SYNTHROID [Concomitant]
     Dosage: 175 UG, UNK
     Route: 064
     Dates: start: 20041022
  5. METRONIDAZOLE [Concomitant]
     Dosage: 500 MG, UNK
     Route: 064
     Dates: start: 20051220
  6. ZOLOFT [Suspect]
     Indication: ANXIETY
     Dosage: 25 MG, DAILY FOR ONE WEEK
     Route: 064
     Dates: start: 20050928, end: 20051004

REACTIONS (3)
  - PERSISTENT FOETAL CIRCULATION [None]
  - EXOMPHALOS [None]
  - MATERNAL EXPOSURE TIMING UNSPECIFIED [None]
